FAERS Safety Report 10191506 (Version 2)
Quarter: 2014Q2

REPORT INFORMATION
  Report Type: Spontaneous
  Country: US (occurrence: US)
  Receive Date: 20140523
  Receipt Date: 20140523
  Transmission Date: 20141212
  Serious: Yes (Hospitalization, Other)
  Sender: FDA-Public Use
  Company Number: PHEH2014US009766

PATIENT
  Sex: Male

DRUGS (6)
  1. CLOZARIL [Suspect]
     Indication: SCHIZOPHRENIA
     Dosage: 400 MG, BID
     Route: 048
  2. LEXAPRO [Concomitant]
     Dosage: 10 MG, UNK
     Route: 048
  3. COGENTIN [Concomitant]
     Dosage: 0.5 MG, UNK
     Route: 048
  4. SAPHRIS [Concomitant]
     Dosage: 5 MG, UNK
     Route: 048
  5. TRAZODONE [Concomitant]
     Dosage: 50 MG, QHS
     Route: 048
  6. LISINOPRIL [Concomitant]
     Dosage: 10 MG, UNK
     Route: 048

REACTIONS (1)
  - Suicidal ideation [Unknown]
